FAERS Safety Report 8579947-0 (Version None)
Quarter: 2012Q3

REPORT INFORMATION
  Report Type: 
  Country: None (occurrence: None)
  Receive Date: 20120808
  Receipt Date: 20120726
  Transmission Date: 20120928
  Serious: Yes (Hospitalization, Other)
  Sender: FDA-Public Use
  Company Number: FR-ELI_LILLY_AND_COMPANY-FR200906000324

PATIENT
  Sex: Female

DRUGS (8)
  1. PROZAC [Suspect]
     Indication: DEPRESSION
     Dosage: UNK, UNK
     Route: 048
     Dates: start: 20080301
  2. NEULEPTIL [Concomitant]
     Dosage: UNK, UNK
     Dates: start: 20080301
  3. ATORVASTATIN [Concomitant]
     Dosage: UNK, UNK
     Dates: start: 20080301
  4. NOCTRAN 10 [Concomitant]
     Dosage: 10 MG, UNK
     Route: 048
     Dates: start: 20080301
  5. ART 50 [Concomitant]
     Dosage: UNK, UNK
     Route: 048
     Dates: start: 20080301
  6. LEVOTHYROXINE SODIUM [Concomitant]
     Dosage: UNK, UNK
     Dates: start: 20080301
  7. AMITRIPTYLINE HYDROCHLORIDE [Concomitant]
     Dosage: UNK, UNK
     Dates: start: 20080301
  8. MEDIATOR [Concomitant]
     Indication: DIABETES MELLITUS
     Dosage: 150 MG, UNK
     Route: 048
     Dates: start: 19980101, end: 20080101

REACTIONS (11)
  - VENTRICULAR FAILURE [None]
  - MITRAL VALVE DISEASE [None]
  - AORTIC VALVE INCOMPETENCE [None]
  - HEPATOJUGULAR REFLUX [None]
  - PLEURAL EFFUSION [None]
  - PULMONARY HYPERTENSION [None]
  - LEFT VENTRICULAR HYPERTROPHY [None]
  - MITRAL VALVE INCOMPETENCE [None]
  - RESTRICTIVE PULMONARY DISEASE [None]
  - ASCITES [None]
  - DYSPNOEA [None]
